FAERS Safety Report 24923939 (Version 1)
Quarter: 2025Q1

REPORT INFORMATION
  Report Type: Spontaneous
  Country: US (occurrence: US)
  Receive Date: 20250204
  Receipt Date: 20250204
  Transmission Date: 20250409
  Serious: No
  Sender: PFIZER
  Company Number: US-PFIZER INC-PV202500013767

PATIENT
  Age: 52 Year
  Sex: Female

DRUGS (20)
  1. NURTEC ODT [Suspect]
     Active Substance: RIMEGEPANT SULFATE
     Indication: Migraine
  2. ADVAIR HFA [Concomitant]
     Active Substance: FLUTICASONE PROPIONATE\SALMETEROL XINAFOATE
  3. ALBUTEROL [Concomitant]
     Active Substance: ALBUTEROL
  4. BACLOFEN [Concomitant]
     Active Substance: BACLOFEN
  5. DULOXETINE [Concomitant]
     Active Substance: DULOXETINE
  6. EMGALITY [Concomitant]
     Active Substance: GALCANEZUMAB-GNLM
  7. GABAPENTIN [Concomitant]
     Active Substance: GABAPENTIN
  8. HYDROCHLOROTHIAZIDE [Concomitant]
     Active Substance: HYDROCHLOROTHIAZIDE
  9. KETOROLAC [Concomitant]
     Active Substance: KETOROLAC TROMETHAMINE
  10. LISINOPRIL [Concomitant]
     Active Substance: LISINOPRIL
  11. MAXALT [Concomitant]
     Active Substance: RIZATRIPTAN BENZOATE
  12. MELOXICAM [Concomitant]
     Active Substance: MELOXICAM
  13. METFORMIN [Concomitant]
     Active Substance: METFORMIN HYDROCHLORIDE
  14. OCREVUS [Concomitant]
     Active Substance: OCRELIZUMAB
  15. OMEPRAZOLE [Concomitant]
     Active Substance: OMEPRAZOLE
  16. ONDANSETRON [Concomitant]
     Active Substance: ONDANSETRON
  17. TOPIRAMATE [Concomitant]
     Active Substance: TOPIRAMATE
  18. VILAZODONE [Concomitant]
     Active Substance: VILAZODONE
  19. VITAMIN D NOS [Concomitant]
     Active Substance: CHOLECALCIFEROL\ERGOCALCIFEROL
  20. WEGOVY [Concomitant]
     Active Substance: SEMAGLUTIDE

REACTIONS (1)
  - Drug effect less than expected [Unknown]
